FAERS Safety Report 16001693 (Version 6)
Quarter: 2019Q4

REPORT INFORMATION
  Report Type: Spontaneous
  Country: US (occurrence: US)
  Receive Date: 20190225
  Receipt Date: 20191120
  Transmission Date: 20200122
  Serious: No
  Sender: FDA-Public Use
  Company Number: US-PFIZER INC-2019080348

PATIENT
  Age: 71 Year
  Sex: Male
  Weight: 77 kg

DRUGS (24)
  1. ENVARSUS XR [Concomitant]
     Active Substance: TACROLIMUS
     Dosage: 4 MG, 1X/DAY (MORNING)
  2. CALCITRIOL. [Concomitant]
     Active Substance: CALCITRIOL
     Dosage: 1 UG, 1X/DAY (MORNING)
  3. DOCUSATE;SENNA [Concomitant]
     Dosage: 1 DF, AS NEEDED [50 MG;8.6 MG] (TWO TIMES A DAY AS NEEDED]
  4. LYRICA [Suspect]
     Active Substance: PREGABALIN
     Indication: ARTHRALGIA
     Dosage: 50 MG, 1X/DAY (EVENING)
     Route: 048
     Dates: start: 2007
  5. SIROLIMUS. [Concomitant]
     Active Substance: SIROLIMUS
     Dosage: 0.5 MG, 1X/DAY (MORNING)
  6. ELIQUIS [Concomitant]
     Active Substance: APIXABAN
     Dosage: 2.5 MG, 2X/DAY ((MORNING AND EVENING))
  7. NOVOLOG [Concomitant]
     Active Substance: INSULIN ASPART
     Dosage: 3 ML, WEEKLY (LUNCHTIME WITH MEALS)
     Route: 058
  8. NOVOLOG [Concomitant]
     Active Substance: INSULIN ASPART
     Dosage: 3 ML, WEEKLY (DINNERTIME WITH MEALS)
     Route: 058
  9. LYRICA [Suspect]
     Active Substance: PREGABALIN
     Indication: DIABETIC NEUROPATHY
     Dosage: 50 MG, 2X/DAY
     Route: 048
     Dates: start: 2007, end: 2007
  10. NOVOLOG [Concomitant]
     Active Substance: INSULIN ASPART
     Dosage: 3 ML, WEEKLY (ONCE A WEEK ON FRIDAY WITH MEALS)
     Route: 058
  11. MAGNESIUM OXIDE. [Concomitant]
     Active Substance: MAGNESIUM OXIDE
     Dosage: 800 MG, WEEKLY (ONCE A WEEK ON FRIDAY WITH MEALS)
  12. OMEPRAZOLE. [Concomitant]
     Active Substance: OMEPRAZOLE
     Dosage: 40 MG, WEEKLY (ONCE A WEEK ON FRIDAY WITH MEALS)
  13. PRAVASTATIN. [Concomitant]
     Active Substance: PRAVASTATIN
     Dosage: 40 MG, DAILY (EVENING)
  14. ALLOPURINOL. [Concomitant]
     Active Substance: ALLOPURINOL
     Dosage: 100 MG, 1X/DAY (MORNING)
  15. CARVEDILOL. [Concomitant]
     Active Substance: CARVEDILOL
     Dosage: 25 MG, 2X/DAY  (MORNING AND EVENING)
  16. VITAMIN D [ERGOCALCIFEROL] [Concomitant]
     Active Substance: ERGOCALCIFEROL
     Dosage: 50000 IU, WEEKLY (ONCE A WEEK ON FRIDAY WITH MEALS)
  17. ZOFRAN [Concomitant]
     Active Substance: ONDANSETRON HYDROCHLORIDE
     Indication: NAUSEA
     Dosage: UNK UNK, AS NEEDED [1-2 TABLETS;4MG (4 MG TABLET);EVERY 6 HOURS AS NEEDED]
  18. LYRICA [Suspect]
     Active Substance: PREGABALIN
     Indication: PAIN IN EXTREMITY
     Dosage: 50 MG, WEEKLY (ONCE A WEEK ON FRIDAY WITH MEALS)
     Route: 048
     Dates: start: 2007, end: 2007
  19. FLOMAX [Concomitant]
     Active Substance: TAMSULOSIN HYDROCHLORIDE
     Dosage: 0.4 MG, 1X/DAY (EVENING)
  20. ALBUTEROL [SALBUTAMOL] [Concomitant]
     Active Substance: ALBUTEROL
     Indication: DYSPNOEA
     Dosage: UNK, AS NEEDED (EVERY 4 HOURS AS NEEDED; 1 INHALATION)
     Route: 055
  21. PREDNISONE. [Concomitant]
     Active Substance: PREDNISONE
     Dosage: 5 MG, 1X/DAY (MORNING)
  22. MAGNESIUM OXIDE. [Concomitant]
     Active Substance: MAGNESIUM OXIDE
     Dosage: 1200 MG, DAILY (EVENING)
  23. ZOFRAN [Concomitant]
     Active Substance: ONDANSETRON HYDROCHLORIDE
     Indication: VOMITING
  24. LANTUS [Concomitant]
     Active Substance: INSULIN GLARGINE
     Dosage: 3 ML, 1X/DAY (EVENING) (3 ML (300 UNITS PER PEN))
     Route: 058

REACTIONS (2)
  - Sputum discoloured [Recovered/Resolved]
  - Upper-airway cough syndrome [Recovered/Resolved]

NARRATIVE: CASE EVENT DATE: 2019
